FAERS Safety Report 24258209 (Version 1)
Quarter: 2024Q3

REPORT INFORMATION
  Report Type: Report from Study
  Country: US (occurrence: US)
  Receive Date: 20240828
  Receipt Date: 20240828
  Transmission Date: 20241017
  Serious: Yes (Death, Other)
  Sender: ACADIA PHARMACEUTICALS
  Company Number: US-ACADIA PHARMACEUTICALS INC.-ACA-2024-PIM-004371

PATIENT
  Age: 76 Year
  Sex: Male

DRUGS (16)
  1. NUPLAZID [Suspect]
     Active Substance: PIMAVANSERIN TARTRATE
     Indication: Parkinson^s disease
     Dosage: 44 MG DAILY
     Route: 048
     Dates: start: 20230515, end: 20240727
  2. NUPLAZID [Suspect]
     Active Substance: PIMAVANSERIN TARTRATE
     Indication: Parkinson^s disease
     Dosage: 44 MG DAILY
     Route: 048
     Dates: start: 20230515, end: 20240727
  3. EXELON PATCH [Concomitant]
     Active Substance: RIVASTIGMINE
  4. OLANZAPINE [Concomitant]
     Active Substance: OLANZAPINE
  5. MELATONIN [Concomitant]
     Active Substance: MELATONIN
  6. SENNA LEAF [Concomitant]
     Active Substance: SENNA LEAF
  7. RESTASIS [Concomitant]
     Active Substance: CYCLOSPORINE
  8. FLUDROCORTISONE ACETATE [Concomitant]
     Active Substance: FLUDROCORTISONE ACETATE
  9. MYRBETRIQ [Concomitant]
     Active Substance: MIRABEGRON
  10. IBUPROFEN [Concomitant]
     Active Substance: IBUPROFEN
  11. MIRALAX [Concomitant]
     Active Substance: POLYETHYLENE GLYCOL 3350
  12. SERTRALINE [Concomitant]
     Active Substance: SERTRALINE HYDROCHLORIDE
  13. METAMUCIL [Concomitant]
     Active Substance: PLANTAGO SEED
  14. MIDODRINE [Concomitant]
     Active Substance: MIDODRINE
  15. ONDANSETRON [Concomitant]
     Active Substance: ONDANSETRON
  16. VITAMIN D3 [Concomitant]
     Active Substance: CHOLECALCIFEROL

REACTIONS (3)
  - Parkinson^s disease [Recovered/Resolved]
  - Dementia [Recovered/Resolved]
  - Overdose [Recovered/Resolved]

NARRATIVE: CASE EVENT DATE: 20230515
